FAERS Safety Report 4361057-X (Version None)
Quarter: 2004Q2

REPORT INFORMATION
  Report Type: 
  Country: None (occurrence: None)
  Receive Date: 20040519
  Receipt Date: 20040519
  Transmission Date: 20050107
  Serious: Yes (Hospitalization)
  Sender: FDA-Public Use
  Company Number: None

PATIENT
  Age: 81 Year
  Sex: Male
  Weight: 66.9 kg

DRUGS (7)
  1. PHENYTOIN [Suspect]
  2. DIGOXIN [Concomitant]
  3. GABAPENTIN [Concomitant]
  4. OMEPRAZOLE [Concomitant]
  5. RISPERIDONE [Concomitant]
  6. CITALOPRAM [Concomitant]
  7. WARFARIN SODIUM [Concomitant]

REACTIONS (1)
  - MENTAL STATUS CHANGES [None]
